FAERS Safety Report 25901486 (Version 1)
Quarter: 2025Q4

REPORT INFORMATION
  Report Type: Spontaneous
  Country: EU (occurrence: EU)
  Receive Date: 20251009
  Receipt Date: 20251009
  Transmission Date: 20260118
  Serious: Yes (Other)
  Sender: TEVA
  Company Number: None

PATIENT
  Age: 78 Year
  Sex: Female
  Weight: 56.5 kg

DRUGS (3)
  1. DOXYCYCLINE [Suspect]
     Active Substance: DOXYCYCLINE
     Indication: Lyme disease
     Dosage: 2 X 30 DAYS FOR LYME DISEASE, BRAND NAME NOT SPECIFIED
     Route: 048
     Dates: start: 20250811
  2. AMLODIPINE [Suspect]
     Active Substance: AMLODIPINE BESYLATE
     Indication: Hypertension
     Dosage: 1X PER DAY 1 PIECE, BRAND NAME NOT SPECIFIED
     Route: 048
     Dates: start: 20240612
  3. EZETIMIBE [Suspect]
     Active Substance: EZETIMIBE
     Indication: Hypercholesterolaemia
     Dosage: 1X PD 1 TABLET, BRAND NAME NOT SPECIFIED
     Route: 048
     Dates: start: 20250417, end: 20250907

REACTIONS (4)
  - Gait disturbance [Recovering/Resolving]
  - Myalgia [Recovering/Resolving]
  - Dizziness [Recovering/Resolving]
  - Nausea [Recovering/Resolving]
